FAERS Safety Report 12787190 (Version 1)
Quarter: 2016Q3

REPORT INFORMATION
  Report Type: Spontaneous
  Country: US (occurrence: US)
  Receive Date: 20160927
  Receipt Date: 20160927
  Transmission Date: 20161109
  Serious: No
  Sender: FDA-Public Use
  Company Number: US-ASTRAZENECA-2016SE98567

PATIENT
  Sex: Female

DRUGS (1)
  1. CRESTOR [Suspect]
     Active Substance: ROSUVASTATIN CALCIUM
     Route: 048

REACTIONS (6)
  - Weight increased [Unknown]
  - Gait disturbance [Unknown]
  - Arthralgia [Unknown]
  - Adverse drug reaction [Unknown]
  - Thyroid disorder [Unknown]
  - Polyarthritis [Unknown]
